FAERS Safety Report 15840125 (Version 2)
Quarter: 2019Q1

REPORT INFORMATION
  Report Type: Spontaneous
  Country: BR (occurrence: BR)
  Receive Date: 20190117
  Receipt Date: 20190123
  Transmission Date: 20190417
  Serious: Yes (Other)
  Sender: FDA-Public Use
  Company Number: BR-BAXTER-2019BAX000834

PATIENT
  Age: 68 Year
  Sex: Female
  Weight: 53 kg

DRUGS (25)
  1. BAXTER GLICOSE 5% - 500 ML [Suspect]
     Active Substance: DEXTROSE
     Indication: MEDICATION DILUTION
     Dosage: INFUSION TIME: 30 MINUTES [FOR DILUTION: WITH FAULDOXO ( 74 MG)]
     Route: 042
     Dates: start: 20181025
  2. BACTRIM [Concomitant]
     Active Substance: SULFAMETHOXAZOLE\TRIMETHOPRIM
     Indication: PRODUCT USED FOR UNKNOWN INDICATION
     Dosage: 1 MONDAY, WEDNESDAY AND FRIDAY (1 SECOND DAY, FOURTH DAY AND SIXTH DAY)
     Route: 065
  3. PARACETAMOL [Concomitant]
     Active Substance: ACETAMINOPHEN
     Indication: PRODUCT USED FOR UNKNOWN INDICATION
     Route: 048
  4. GENUXAL [Suspect]
     Active Substance: CYCLOPHOSPHAMIDE
     Dosage: SIXTH CYCLE
     Route: 042
     Dates: start: 20181128
  5. CLORETO DE S?DIO - BAXTER [Suspect]
     Active Substance: SODIUM CHLORIDE
     Indication: MEDICATION DILUTION
     Dosage: WITH FAULDVINCRI (2 MG)
     Route: 040
     Dates: start: 20181025
  6. FAULDVINCRI [Suspect]
     Active Substance: VINCRISTINE SULFATE
     Indication: NON-HODGKIN^S LYMPHOMA
     Dosage: FIRST CYCLE
     Route: 040
     Dates: start: 20180802
  7. MABTHERA [Suspect]
     Active Substance: RITUXIMAB
     Dosage: INFUSION TIME:100 MG PER HOUR INCREASING EVERY 30 SECONDS TO A MAXIMUM OF 400 MG PER HOUR (DILUTED W
     Route: 042
     Dates: start: 20181025
  8. PANTOPRAZOLE [Concomitant]
     Active Substance: PANTOPRAZOLE
     Indication: PRODUCT USED FOR UNKNOWN INDICATION
     Route: 065
  9. DIPHENHYDRAMINE. [Concomitant]
     Active Substance: DIPHENHYDRAMINE
     Indication: PRODUCT USED FOR UNKNOWN INDICATION
     Route: 042
  10. GRANISETRON [Concomitant]
     Active Substance: GRANISETRON
     Indication: PRODUCT USED FOR UNKNOWN INDICATION
     Route: 042
  11. PREDNISONE. [Concomitant]
     Active Substance: PREDNISONE
     Indication: PRODUCT USED FOR UNKNOWN INDICATION
     Route: 048
  12. GENUXAL [Suspect]
     Active Substance: CYCLOPHOSPHAMIDE
     Dosage: INFUSION TIME: 30 MINUTES (DILUTED WITH 250 ML OF 0.9 % PHYSIOLOGICAL SOLUTION)
     Route: 042
     Dates: start: 20181025
  13. CLORETO DE S?DIO - BAXTER [Suspect]
     Active Substance: SODIUM CHLORIDE
     Dosage: INFUSION TIME: 30 MINUTES [FOR DILUTION: WITH GENUXAL (1110 MG)].
     Route: 042
     Dates: start: 20181025
  14. MABTHERA [Suspect]
     Active Substance: RITUXIMAB
     Indication: NON-HODGKIN^S LYMPHOMA
     Dosage: FIRST CYCLE
     Route: 042
     Dates: start: 20180802
  15. MABTHERA [Suspect]
     Active Substance: RITUXIMAB
     Dosage: SIXTH CYCLE
     Route: 042
     Dates: start: 20181128
  16. ALLOPURINOL. [Suspect]
     Active Substance: ALLOPURINOL
     Indication: PRODUCT USED FOR UNKNOWN INDICATION
     Route: 065
  17. GENUXAL [Suspect]
     Active Substance: CYCLOPHOSPHAMIDE
     Route: 042
     Dates: start: 20181025
  18. CLORETO DE S?DIO - BAXTER [Suspect]
     Active Substance: SODIUM CHLORIDE
     Dosage: INFUSION TIME:100MG PER HOUR INCREASING EVERY 30 SECONDS TO A MAXIMUM OF 400MG PER HOUR [FOR DILUTIO
     Route: 042
     Dates: start: 20181025
  19. FAULDVINCRI [Suspect]
     Active Substance: VINCRISTINE SULFATE
     Dosage: INFUSION TIME: BOLUS (DILUTED WITH 50 ML OF 0.9 % PHYSIOLOGICAL SOLUTION)
     Route: 040
     Dates: start: 20181025
  20. FAULDVINCRI [Suspect]
     Active Substance: VINCRISTINE SULFATE
     Dosage: SIXTH CYCLE
     Route: 040
     Dates: start: 20181128
  21. FAULDOXO [Suspect]
     Active Substance: DOXORUBICIN HYDROCHLORIDE
     Dosage: INFUSION TIME: 30 MINUTES (DILUTED WITH 50 ML OF 5 % GLYCOSED SOLUTION)
     Route: 042
     Dates: start: 20181025
  22. GENUXAL [Suspect]
     Active Substance: CYCLOPHOSPHAMIDE
     Indication: NON-HODGKIN^S LYMPHOMA
     Dosage: FIRST CYCLE
     Route: 042
     Dates: start: 20180802
  23. FAULDOXO [Suspect]
     Active Substance: DOXORUBICIN HYDROCHLORIDE
     Dosage: SIXTH CYCLE
     Route: 042
     Dates: start: 20181128
  24. DEXAMETHASONE. [Concomitant]
     Active Substance: DEXAMETHASONE
     Indication: PRODUCT USED FOR UNKNOWN INDICATION
     Route: 042
  25. FAULDOXO [Suspect]
     Active Substance: DOXORUBICIN HYDROCHLORIDE
     Indication: NON-HODGKIN^S LYMPHOMA
     Dosage: FIRST CYCLE
     Route: 042
     Dates: start: 20180802

REACTIONS (2)
  - Neutropenia [Recovering/Resolving]
  - Neutropenia [Recovered/Resolved]

NARRATIVE: CASE EVENT DATE: 20181121
